FAERS Safety Report 6877984-5 (Version None)
Quarter: 2010Q3

REPORT INFORMATION
  Report Type: 
  Country: None (occurrence: None)
  Receive Date: 20100727
  Receipt Date: 20100722
  Transmission Date: 20110219
  Serious: Yes (Life-Threatening, Hospitalization, Other)
  Sender: FDA-Public Use
  Company Number: CA-B.I. PHARMACEUTICALS,INC./RIDGEFIELD-2010-CN-00471CN

PATIENT
  Age: 55 Year
  Sex: Female

DRUGS (4)
  1. MICARDIS [Suspect]
     Route: 065
  2. HYDROCHLOROTHIAZIDE [Concomitant]
     Route: 048
  3. PANTOPRAZOLE [Concomitant]
     Route: 048
  4. SYNTHROID [Concomitant]
     Route: 048

REACTIONS (5)
  - APPARENT DEATH [None]
  - DYSPHAGIA [None]
  - EATING DISORDER [None]
  - LARYNGEAL OEDEMA [None]
  - WEIGHT DECREASED [None]
